FAERS Safety Report 9063013 (Version 1)
Quarter: 2013Q1

REPORT INFORMATION
  Report Type: Report from Study
  Country: US (occurrence: US)
  Receive Date: 20130131
  Receipt Date: 20130131
  Transmission Date: 20140127
  Serious: No
  Sender: FDA-Public Use
  Company Number: US-ABBOTT-12P-163-1007972-00

PATIENT
  Age: 63 Year
  Sex: Male

DRUGS (13)
  1. HUMIRA [Suspect]
     Indication: CROHN^S DISEASE
  2. MULTIVITAMINS [Concomitant]
     Indication: PRODUCT USED FOR UNKNOWN INDICATION
     Dosage: ONCE DAILY
  3. VITAMIN B12 [Concomitant]
     Indication: PRODUCT USED FOR UNKNOWN INDICATION
  4. VITAMIN D [Concomitant]
     Indication: PRODUCT USED FOR UNKNOWN INDICATION
  5. ASA [Concomitant]
     Indication: PRODUCT USED FOR UNKNOWN INDICATION
     Dosage: DAILY
  6. GLUCOSAMINE [Concomitant]
     Indication: PRODUCT USED FOR UNKNOWN INDICATION
  7. PANTOPRAZOLE [Concomitant]
     Indication: PRODUCT USED FOR UNKNOWN INDICATION
  8. BECOPAN [Concomitant]
     Indication: DEEP BRAIN STIMULATION
  9. BEANO [Concomitant]
     Indication: GASTRIC DISORDER
     Dosage: TWICE DAILY
  10. KRILL OIL [Concomitant]
     Indication: CROHN^S DISEASE
  11. DIOVAN HCT [Concomitant]
     Indication: HYPERTENSION
     Dosage: 320/25MG DAILY
  12. METOPROLOL [Concomitant]
     Indication: HYPERTENSION
  13. AMLODIPINE [Concomitant]
     Indication: HYPERTENSION
     Dosage: DAILY

REACTIONS (1)
  - Injection site pain [Recovered/Resolved]
